FAERS Safety Report 4722549-4 (Version None)
Quarter: 2005Q3

REPORT INFORMATION
  Report Type: 
  Country: None (occurrence: None)
  Receive Date: 20050720
  Receipt Date: 20050705
  Transmission Date: 20060218
  Serious: Yes (Death, Hospitalization)
  Sender: FDA-Public Use
  Company Number: 2005BI006047

PATIENT
  Age: 59 Year
  Sex: Female
  Weight: 47.6277 kg

DRUGS (11)
  1. AVONEX [Suspect]
     Indication: MULTIPLE SCLEROSIS
     Dosage: 30 UG;QW; IM
     Route: 030
     Dates: start: 20010328, end: 20030801
  2. AVONEX [Suspect]
     Indication: MULTIPLE SCLEROSIS
     Dosage: 30 UG;QW; IM
     Route: 030
     Dates: start: 20030818, end: 20050312
  3. TARKA [Concomitant]
  4. EFFEXOR [Concomitant]
  5. CELEBREX [Concomitant]
  6. NEURONTIN [Concomitant]
  7. DIGOXIN [Concomitant]
  8. CLONAZEPAM [Concomitant]
  9. HYDROCHLOROTHIAZIDE [Concomitant]
  10. NITROFURANTOIN [Concomitant]
  11. IMMUNE GLOBULIN INTRAVENOUS (HUMAN) [Concomitant]

REACTIONS (10)
  - BALANCE DISORDER [None]
  - FALL [None]
  - LOSS OF CONSCIOUSNESS [None]
  - MYOCARDIAL INFARCTION [None]
  - NORMAL PRESSURE HYDROCEPHALUS [None]
  - PYREXIA [None]
  - SHUNT INFECTION [None]
  - SPINAL LAMINECTOMY [None]
  - STAPHYLOCOCCAL INFECTION [None]
  - SUBDURAL HAEMATOMA [None]
